FAERS Safety Report 8764465 (Version 1)
Quarter: 2012Q4

REPORT INFORMATION
  Report Type: 
  Country: CH (occurrence: CH)
  Receive Date: 20120831
  Receipt Date: 20120831
  Transmission Date: 20130627
  Serious: Yes (Hospitalization)
  Sender: FDA-Public Use
  Company Number: CH-ASTRAZENECA-2012SE61406

PATIENT
  Age: 83 Year
  Sex: Female

DRUGS (9)
  1. BELOC ZOK [Suspect]
     Indication: ESSENTIAL HYPERTENSION
     Route: 048
     Dates: start: 20120517
  2. TRIATEC [Suspect]
     Indication: HYPERTENSIVE HEART DISEASE
     Route: 048
     Dates: start: 20120517
  3. TRIATEC [Suspect]
     Indication: HYPERTENSIVE NEPHROPATHY
     Route: 048
     Dates: start: 20120517
  4. NALOXONE HYDROCHLORIDE\OXYCODONE HYDROCHLORIDE [Suspect]
     Indication: PAIN
     Dosage: 10/5 MG, DAILY
     Route: 048
  5. MARCOUMAR [Concomitant]
     Route: 048
  6. MARCOUMAR [Concomitant]
     Route: 048
  7. TOREM [Concomitant]
     Route: 048
  8. CALCIUM + D3 [Concomitant]
     Route: 048
  9. STILNOX [Concomitant]
     Route: 048

REACTIONS (3)
  - Renal failure chronic [Recovered/Resolved]
  - Bradyarrhythmia [Recovered/Resolved]
  - Syncope [Recovered/Resolved]
